FAERS Safety Report 10438384 (Version 5)
Quarter: 2015Q2

REPORT INFORMATION
  Report Type: Report from Study
  Country: BR (occurrence: BR)
  Receive Date: 20140908
  Receipt Date: 20150423
  Transmission Date: 20150821
  Serious: Yes (Hospitalization, Disabling, Other)
  Sender: FDA-Public Use
  Company Number: PHHY2014BR109434

PATIENT
  Age: 62 Year
  Sex: Male

DRUGS (3)
  1. AFINITOR [Suspect]
     Active Substance: EVEROLIMUS
     Indication: SPINAL CORD NEOPLASM
     Dosage: 10 MG, QD
     Route: 065
     Dates: start: 201303
  2. SUNITINIB [Suspect]
     Active Substance: SUNITINIB
     Indication: PRODUCT USED FOR UNKNOWN INDICATION
     Dosage: UNK
     Route: 065
  3. TRICID [Suspect]
     Active Substance: DICLOFENAC POTASSIUM
     Indication: CANCER PAIN
     Dosage: UNK
     Route: 048

REACTIONS (13)
  - Abdominal distension [Recovering/Resolving]
  - Malaise [Not Recovered/Not Resolved]
  - Weight decreased [Not Recovered/Not Resolved]
  - Pain [Unknown]
  - Abasia [Not Recovered/Not Resolved]
  - Concomitant disease aggravated [Unknown]
  - Functional gastrointestinal disorder [Recovering/Resolving]
  - Asphyxia [Recovering/Resolving]
  - Product use issue [Unknown]
  - Dysstasia [Unknown]
  - Spinal pain [Unknown]
  - Pulmonary oedema [Recovering/Resolving]
  - Movement disorder [Not Recovered/Not Resolved]

NARRATIVE: CASE EVENT DATE: 201303
